FAERS Safety Report 6443219-0 (Version None)
Quarter: 2009Q4

REPORT INFORMATION
  Report Type: 
  Country: None (occurrence: None)
  Receive Date: 20091117
  Receipt Date: 20091110
  Transmission Date: 20100525
  Serious: Yes (Other)
  Sender: FDA-Public Use
  Company Number: US-AMGEN-US371958

PATIENT
  Sex: Female
  Weight: 96.7 kg

DRUGS (11)
  1. NPLATE [Suspect]
     Indication: IDIOPATHIC THROMBOCYTOPENIC PURPURA
     Route: 058
     Dates: start: 20090813
  2. NPLATE [Suspect]
     Route: 058
     Dates: start: 20090813, end: 20090813
  3. NPLATE [Suspect]
     Route: 058
     Dates: start: 20090820, end: 20090827
  4. NPLATE [Suspect]
     Route: 058
     Dates: start: 20090903, end: 20090903
  5. NPLATE [Suspect]
     Dates: start: 20090910, end: 20090910
  6. NPLATE [Suspect]
     Route: 058
     Dates: start: 20090916, end: 20091023
  7. NPLATE [Suspect]
     Route: 058
     Dates: start: 20091029, end: 20091029
  8. NPLATE [Suspect]
     Route: 058
     Dates: start: 20091101
  9. INFLUENZA VACCINE [Concomitant]
     Route: 030
     Dates: start: 20091021, end: 20091021
  10. DYAZIDE [Concomitant]
     Route: 065
  11. LISINOPRIL [Concomitant]
     Dates: start: 20091023

REACTIONS (3)
  - EPISTAXIS [None]
  - PETECHIAE [None]
  - PLATELET COUNT DECREASED [None]
